FAERS Safety Report 20573096 (Version 1)
Quarter: 2022Q1

REPORT INFORMATION
  Report Type: Spontaneous
  Country: US (occurrence: US)
  Receive Date: 20220309
  Receipt Date: 20220309
  Transmission Date: 20220423
  Serious: Yes (Other)
  Sender: FDA-Public Use
  Company Number: US-SA-SAC20220304001620

PATIENT
  Age: 50 Year
  Sex: Male

DRUGS (2)
  1. ZANTAC [Suspect]
     Active Substance: RANITIDINE HYDROCHLORIDE
     Indication: Dyspepsia
     Dosage: 150 MG FREQUENCY:OCCASIONAL
     Dates: start: 199402, end: 201401
  2. ZANTAC [Suspect]
     Active Substance: RANITIDINE HYDROCHLORIDE
     Dosage: 300 MG FREQUENCY:OCCASIONAL
     Dates: start: 199402, end: 201401

REACTIONS (1)
  - Colorectal cancer stage I [Unknown]

NARRATIVE: CASE EVENT DATE: 20200301
